FAERS Safety Report 12598338 (Version 1)
Quarter: 2016Q3

REPORT INFORMATION
  Report Type: Spontaneous
  Country: US (occurrence: None)
  Receive Date: 20160726
  Receipt Date: 20160726
  Transmission Date: 20161109
  Serious: No
  Sender: FDA-Public Use
  Company Number: None

PATIENT
  Age: 54 Year
  Sex: Female

DRUGS (2)
  1. RIBASPHERE [Suspect]
     Active Substance: RIBAVIRIN
     Dosage: 200MG 2AM AND 2PM ORAL
     Route: 048
     Dates: start: 20160620
  2. SOVALDI [Suspect]
     Active Substance: SOFOSBUVIR
     Route: 048
     Dates: start: 20160620

REACTIONS (3)
  - Headache [None]
  - Gastrooesophageal reflux disease [None]
  - Pruritus [None]

NARRATIVE: CASE EVENT DATE: 20160725
